FAERS Safety Report 8926853 (Version 1)
Quarter: 2012Q4

REPORT INFORMATION
  Report Type: 
  Country: FR (occurrence: FR)
  Receive Date: 20121127
  Receipt Date: 20121127
  Transmission Date: 20130627
  Serious: Yes (Hospitalization, Other)
  Sender: FDA-Public Use
  Company Number: FR-ELI_LILLY_AND_COMPANY-FR201211003754

PATIENT
  Age: 65 None
  Sex: Female

DRUGS (8)
  1. PROZAC [Suspect]
     Indication: DEPRESSION
     Dosage: 20 mg, qd
     Route: 048
     Dates: start: 201102, end: 20120730
  2. EURELIX [Concomitant]
     Indication: HYPERTENSION
     Dosage: 6 mg, qd
     Dates: end: 20120731
  3. EUPRESSYL [Concomitant]
     Dosage: 30 mg, bid
  4. EXFORGE [Concomitant]
     Dosage: 1 DF, unknown
  5. LEVOTHYROX [Concomitant]
     Dosage: 0.1 mg, qd
  6. DIAMICRON [Concomitant]
     Dosage: 60 mg, qd
  7. DEPAMIDE [Concomitant]
     Dosage: 3 DF, qd
  8. TERCIAN [Concomitant]
     Dosage: 100 mg, qd

REACTIONS (3)
  - Hyponatraemia [Recovered/Resolved]
  - Hypochloraemia [Recovered/Resolved]
  - Fall [Unknown]
